FAERS Safety Report 7758399-4 (Version None)
Quarter: 2011Q3

REPORT INFORMATION
  Report Type: 
  Country: None (occurrence: None)
  Receive Date: 20110919
  Receipt Date: 20110913
  Transmission Date: 20111222
  Serious: No
  Sender: FDA-Public Use
  Company Number: US-PFIZER INC-2011216824

PATIENT
  Sex: Male
  Weight: 86 kg

DRUGS (3)
  1. NEURONTIN [Suspect]
     Indication: TACHYPHRENIA
     Dosage: 600 MG, 3X/DAY
     Dates: start: 20030101
  2. NEURONTIN [Suspect]
     Dosage: 600 MG, 2X/DAY
     Dates: start: 20110801, end: 20110801
  3. NEURONTIN [Suspect]
     Dosage: 600 MG, 1X/DAY
     Dates: start: 20110801, end: 20110801

REACTIONS (3)
  - VISION BLURRED [None]
  - VITREOUS FLOATERS [None]
  - PHOTOPSIA [None]
